FAERS Safety Report 11269845 (Version 1)
Quarter: 2015Q3

REPORT INFORMATION
  Report Type: Spontaneous
  Country: US (occurrence: US)
  Receive Date: 20150714
  Receipt Date: 20150714
  Transmission Date: 20151125
  Serious: Yes (Death, Hospitalization)
  Sender: FDA-Public Use
  Company Number: US-SA-2015SA100373

PATIENT

DRUGS (1)
  1. CEFOTAXIME [Suspect]
     Active Substance: CEFOTAXIME SODIUM
     Route: 042

REACTIONS (3)
  - Blood bilirubin increased [Fatal]
  - Drug-induced liver injury [Fatal]
  - Blood alkaline phosphatase increased [Fatal]
